FAERS Safety Report 17555177 (Version 1)
Quarter: 2020Q1

REPORT INFORMATION
  Report Type: Spontaneous
  Country: US (occurrence: US)
  Receive Date: 20200317
  Receipt Date: 20200317
  Transmission Date: 20200409
  Serious: Yes (Life-Threatening)
  Sender: FDA-Public Use
  Company Number: None

PATIENT
  Age: 48 Year
  Sex: Male
  Weight: 108 kg

DRUGS (24)
  1. ALTACE [Concomitant]
     Active Substance: RAMIPRIL
  2. CRESTOR [Concomitant]
     Active Substance: ROSUVASTATIN CALCIUM
  3. OMNIPOD [Concomitant]
  4. TRILEPTAL [Concomitant]
     Active Substance: OXCARBAZEPINE
  5. ZYRTEC [Concomitant]
     Active Substance: CETIRIZINE HYDROCHLORIDE
  6. SINGULAIR [Concomitant]
     Active Substance: MONTELUKAST SODIUM
  7. ZETIA [Concomitant]
     Active Substance: EZETIMIBE
  8. NEXIUM [Concomitant]
     Active Substance: ESOMEPRAZOLE MAGNESIUM
  9. SYNTHROID [Concomitant]
     Active Substance: LEVOTHYROXINE SODIUM
  10. VASCEPA [Concomitant]
     Active Substance: ICOSAPENT ETHYL
  11. LAMICTAL [Concomitant]
     Active Substance: LAMOTRIGINE
  12. DEXCOM [Concomitant]
  13. AMLODIPINE BESYLATE. [Concomitant]
     Active Substance: AMLODIPINE BESYLATE
  14. HYDROCHLOROTHIAZIDE. [Concomitant]
     Active Substance: HYDROCHLOROTHIAZIDE
  15. NOVOLOG [Concomitant]
     Active Substance: INSULIN ASPART
  16. TRULICITY [Concomitant]
     Active Substance: DULAGLUTIDE
  17. BUSPAR [Concomitant]
     Active Substance: BUSPIRONE HYDROCHLORIDE
  18. VITAMIN D [Concomitant]
     Active Substance: VITAMIN D NOS
  19. NOVOLOG [Suspect]
     Active Substance: INSULIN ASPART
     Indication: TYPE 2 DIABETES MELLITUS
     Dosage: ?          QUANTITY:10 INJECTION(S);OTHER FREQUENCY:200 UNITS/3 DAYS;OTHER ROUTE:CGM OMNIPOD?
     Dates: start: 20200305, end: 20200317
  20. G6 [Concomitant]
  21. CGM [Concomitant]
  22. MELATONIN [Concomitant]
     Active Substance: MELATONIN
  23. VITAMIN B12 [Concomitant]
     Active Substance: CYANOCOBALAMIN
  24. VISTARIL [Concomitant]
     Active Substance: HYDROXYZINE PAMOATE

REACTIONS (1)
  - Blood glucose fluctuation [None]

NARRATIVE: CASE EVENT DATE: 20200305
